FAERS Safety Report 8804560 (Version 1)
Quarter: 2012Q4

REPORT INFORMATION
  Report Type: 
  Country: CH (occurrence: CH)
  Receive Date: 20120924
  Receipt Date: 20120924
  Transmission Date: 20130627
  Serious: Yes (Other)
  Sender: FDA-Public Use
  Company Number: CH-TEVA-358810ISR

PATIENT
  Age: 23 Year
  Sex: Female

DRUGS (4)
  1. ISOTRETINOIN [Suspect]
     Indication: ACNE
     Dosage: 40 Milligram Daily;
     Route: 065
  2. TOLFENAMIC ACID [Concomitant]
     Route: 065
  3. DICLOFENAC [Concomitant]
     Route: 065
  4. CYPROTERONE, ETHINYLESTRADIOL [Concomitant]
     Route: 065

REACTIONS (3)
  - Encephalopathy [Unknown]
  - Vasculitis [Not Recovered/Not Resolved]
  - Grand mal convulsion [Unknown]
